FAERS Safety Report 11695387 (Version 2)
Quarter: 2015Q4

REPORT INFORMATION
  Report Type: Spontaneous
  Country: ES (occurrence: ES)
  Receive Date: 20151104
  Receipt Date: 20151110
  Transmission Date: 20160304
  Serious: Yes (Other)
  Sender: FDA-Public Use
  Company Number: ES-AMGEN-ESPSP2015115464

PATIENT
  Age: 61 Year
  Sex: Female

DRUGS (7)
  1. SALAZOPIRINA [Concomitant]
     Indication: RHEUMATOID ARTHRITIS
     Dosage: 2 DF, 2X/DAY (2 DF OF 500 MG IN THE MORNINGS AND 2 DF OF 500 MG AT NIGHTS)
  2. DOLQUINE [Concomitant]
     Active Substance: HYDROXYCHLOROQUINE SULFATE
     Indication: RHEUMATOID ARTHRITIS
     Dosage: 200 MG, 1X/DAY (EVERY 24 HOURS, IN THE MORNINGS)
  3. ENBREL [Suspect]
     Active Substance: ETANERCEPT
     Indication: RHEUMATOID ARTHRITIS
     Dosage: 50 MG, WEEKLY (ON TUESDAYS)
     Route: 058
  4. SIMVASTATIN. [Concomitant]
     Active Substance: SIMVASTATIN
     Indication: HYPERCHOLESTEROLAEMIA
     Dosage: 20 MG, 1X/DAY (EVERY 24 HOURS, AT NIGHTS)
  5. ARCOXIA [Concomitant]
     Active Substance: ETORICOXIB
     Indication: RHEUMATOID ARTHRITIS
     Dosage: 90 MG, 1X/DAY (EVERY 24 HOURS, AT MIDDAY)
  6. OMEPRAZOLE. [Concomitant]
     Active Substance: OMEPRAZOLE
     Indication: PROPHYLAXIS
     Dosage: 20 MG, 1X/DAY (EVERY 24 HOURS)
  7. GABAPENTIN. [Concomitant]
     Active Substance: GABAPENTIN
     Indication: RHEUMATOID ARTHRITIS
     Dosage: 300 MG, 3X/DAY (EVERY 8 HOURS)

REACTIONS (1)
  - Laryngeal polyp [Unknown]

NARRATIVE: CASE EVENT DATE: 201506
